FAERS Safety Report 23274759 (Version 1)
Quarter: 2023Q4

REPORT INFORMATION
  Report Type: Spontaneous
  Country: US (occurrence: US)
  Receive Date: 20231208
  Receipt Date: 20231208
  Transmission Date: 20240110
  Serious: Yes (Hospitalization, Other)
  Sender: FDA-Public Use
  Company Number: US-ALEMBIC PHARMACUETICALS LIMITED-2023SCAL001176

PATIENT

DRUGS (3)
  1. LINEZOLID [Suspect]
     Active Substance: LINEZOLID
     Indication: Staphylococcal infection
     Dosage: 600 MILLIGRAM, BID
     Route: 065
  2. CIPROFLOXACIN [Concomitant]
     Active Substance: CIPROFLOXACIN
     Indication: Staphylococcal infection
     Dosage: 500 MILLIGRAM, BID
     Route: 065
  3. TEDIZOLID [Concomitant]
     Active Substance: TEDIZOLID
     Indication: Staphylococcal infection
     Dosage: 200 MILLIGRAM, QD
     Route: 065

REACTIONS (5)
  - Blood creatinine increased [Recovering/Resolving]
  - Myelosuppression [Recovered/Resolved]
  - Thrombocytopenia [Recovered/Resolved]
  - Lactic acidosis [Recovered/Resolved]
  - Blood lactic acid increased [Recovered/Resolved]
